FAERS Safety Report 5019315-1 (Version None)
Quarter: 2006Q2

REPORT INFORMATION
  Report Type: 
  Country: None (occurrence: None)
  Receive Date: 20060606
  Receipt Date: 20060526
  Transmission Date: 20061013
  Serious: Yes (Hospitalization)
  Sender: FDA-Public Use
  Company Number: US-ROCHE-449859

PATIENT
  Age: 54 Year
  Sex: Male

DRUGS (5)
  1. PEGASYS [Suspect]
     Dosage: ROUTE OF ADMINISTRATION REPORTED AS INJ. STRENGTH REPORTED AS 180 MCG/0.5 ML. ADMINISTERED SC QWEEK.
     Route: 050
     Dates: start: 20050817
  2. COPEGUS [Suspect]
     Route: 048
     Dates: start: 20060215
  3. VENTOLIN [Concomitant]
     Indication: ASTHMA
     Route: 055
  4. ADVAIR DISKUS 100/50 [Concomitant]
     Indication: ASTHMA
     Route: 048
  5. RIBASPHERE [Concomitant]
     Route: 065
     Dates: start: 20050817, end: 20060215

REACTIONS (3)
  - ASTHMA [None]
  - CONDITION AGGRAVATED [None]
  - SYNCOPE [None]
